FAERS Safety Report 13156291 (Version 1)
Quarter: 2017Q1

REPORT INFORMATION
  Report Type: Spontaneous
  Country: SE (occurrence: SE)
  Receive Date: 20170126
  Receipt Date: 20170126
  Transmission Date: 20170428
  Serious: Yes (Other)
  Sender: FDA-Public Use
  Company Number: SE-SA-2017SA011081

PATIENT
  Age: 69 Year
  Sex: Male
  Weight: 94 kg

DRUGS (4)
  1. ONDANSETRON [Concomitant]
     Active Substance: ONDANSETRON
     Route: 065
  2. TAXOTERE [Suspect]
     Active Substance: DOCETAXEL
     Indication: TRACHEAL CANCER
     Route: 042
     Dates: start: 20141201, end: 20141201
  3. TAXOTERE [Suspect]
     Active Substance: DOCETAXEL
     Indication: TRACHEAL CANCER
     Route: 042
     Dates: start: 201412, end: 201412
  4. TAXOTERE [Suspect]
     Active Substance: DOCETAXEL
     Indication: TRACHEAL CANCER
     Route: 042

REACTIONS (9)
  - Dysgeusia [Unknown]
  - Onychomadesis [Unknown]
  - Flushing [Unknown]
  - Dry skin [Unknown]
  - Neuropathy peripheral [Unknown]
  - Skin discolouration [Unknown]
  - Chest discomfort [Unknown]
  - Headache [Unknown]
  - Cough [Unknown]

NARRATIVE: CASE EVENT DATE: 2014
